FAERS Safety Report 8214499-6 (Version None)
Quarter: 2012Q1

REPORT INFORMATION
  Report Type: 
  Country: None (occurrence: None)
  Receive Date: 20120316
  Receipt Date: 20120316
  Transmission Date: 20120608
  Serious: Yes (Death)
  Sender: FDA-Public Use
  Company Number: None

PATIENT
  Age: 22 Year
  Sex: Male
  Weight: 163.74 kg

DRUGS (1)
  1. SEROQUEL XR [Suspect]
     Indication: DEPRESSION
     Dosage: 50
     Route: 048
     Dates: start: 20120201, end: 20120213

REACTIONS (2)
  - CEREBROVASCULAR INSUFFICIENCY [None]
  - NEUROLEPTIC MALIGNANT SYNDROME [None]
